FAERS Safety Report 25769349 (Version 1)
Quarter: 2025Q3

REPORT INFORMATION
  Report Type: Report from Study
  Country: EU (occurrence: EU)
  Receive Date: 20250906
  Receipt Date: 20250906
  Transmission Date: 20251021
  Serious: Yes (Congenital Anomaly)
  Sender: CELLTRION
  Company Number: EU-ROCHE-2433696

PATIENT

DRUGS (1)
  1. RITUXIMAB [Suspect]
     Active Substance: RITUXIMAB
     Indication: Product used for unknown indication
     Route: 064

REACTIONS (2)
  - Foetal malformation [Unknown]
  - Foetal exposure during pregnancy [Unknown]
